FAERS Safety Report 6641113-3 (Version None)
Quarter: 2010Q1

REPORT INFORMATION
  Report Type: 
  Country: None (occurrence: None)
  Receive Date: 20100318
  Receipt Date: 20091105
  Transmission Date: 20100710
  Serious: No
  Sender: FDA-Public Use
  Company Number: US-ASTRAZENECA-2009SE25033

PATIENT
  Sex: Male

DRUGS (2)
  1. LISINOPRIL [Suspect]
     Route: 048
  2. ALPRAZOLAM [Suspect]

REACTIONS (2)
  - DRUG EFFECT DECREASED [None]
  - PANIC ATTACK [None]
